FAERS Safety Report 9072945 (Version 1)
Quarter: 2013Q1

REPORT INFORMATION
  Report Type: Spontaneous
  Country: US (occurrence: US)
  Receive Date: 20130129
  Receipt Date: 20130129
  Transmission Date: 20140127
  Serious: No
  Sender: FDA-Public Use
  Company Number: US-ASTRAZENECA-2013SE05085

PATIENT
  Sex: Male

DRUGS (1)
  1. SYMBICORT  PMDI [Suspect]
     Indication: ASTHMA
     Dosage: UNKNOWN
     Route: 055

REACTIONS (2)
  - Asthma [Unknown]
  - Intentional drug misuse [Unknown]
